FAERS Safety Report 6553120-X (Version None)
Quarter: 2010Q1

REPORT INFORMATION
  Report Type: 
  Country: None (occurrence: None)
  Receive Date: 20100127
  Receipt Date: 20090123
  Transmission Date: 20100710
  Serious: No
  Sender: FDA-Public Use
  Company Number: A0765095A

PATIENT
  Age: 34 Year
  Sex: Male
  Weight: 75 kg

DRUGS (4)
  1. IMITREX [Suspect]
     Indication: MIGRAINE
     Dosage: 6MG AS REQUIRED
     Route: 058
     Dates: start: 20030101, end: 20090101
  2. SUMATRIPTAN SUCCINATE [Suspect]
     Indication: MIGRAINE
     Dosage: 6MG AS REQUIRED
     Route: 058
     Dates: start: 20081101
  3. GSK AUTOINJECTOR [Suspect]
     Indication: MIGRAINE
  4. NO CONCURRENT MEDICATION [Concomitant]

REACTIONS (4)
  - DRUG INEFFECTIVE [None]
  - OVERDOSE [None]
  - PARAESTHESIA [None]
  - PRODUCT QUALITY ISSUE [None]
